FAERS Safety Report 5805046-4 (Version None)
Quarter: 2008Q3

REPORT INFORMATION
  Report Type: 
  Country: None (occurrence: None)
  Receive Date: 20080709
  Receipt Date: 20080630
  Transmission Date: 20090109
  Serious: Yes (Hospitalization)
  Sender: FDA-Public Use
  Company Number: FR-PFIZER INC-2008054951

PATIENT
  Sex: Male

DRUGS (41)
  1. TAHOR [Suspect]
     Indication: HYPERCHOLESTEROLAEMIA
     Route: 048
     Dates: start: 20080415, end: 20080423
  2. TRIFLUCAN [Interacting]
     Dates: start: 20080415, end: 20080417
  3. ERYTHROMYCIN [Interacting]
     Dosage: TEXT:70MG/50ML DAILY
     Route: 042
     Dates: start: 20080417, end: 20080424
  4. CORDARONE [Interacting]
     Dates: start: 20080404, end: 20080420
  5. LEVOPHED [Concomitant]
  6. CIFLOX [Concomitant]
     Dates: start: 20080410, end: 20080425
  7. VANCOMYCIN [Concomitant]
     Dosage: TEXT:1G/50ML/24 HOURS
     Dates: start: 20080417, end: 20080425
  8. TIENAM [Concomitant]
     Dosage: TEXT:1G/50ML/ 24 HOURS
     Dates: start: 20080417, end: 20080425
  9. TAVANIC [Concomitant]
     Dates: start: 20080404, end: 20080410
  10. TAVANIC [Concomitant]
     Dates: start: 20080404, end: 20080410
  11. NORADRENALINE [Concomitant]
  12. NORADRENALINE [Concomitant]
  13. XYLOCAINE [Concomitant]
  14. XYLOCAINE [Concomitant]
  15. HEPARIN SODIUM [Concomitant]
  16. HEPARIN SODIUM [Concomitant]
  17. ELISOR [Concomitant]
     Dates: start: 20080401, end: 20080414
  18. ELISOR [Concomitant]
  19. LASIX [Concomitant]
  20. LASIX [Concomitant]
  21. PLAVIX [Concomitant]
  22. PLAVIX [Concomitant]
  23. KARDEGIC [Concomitant]
  24. KARDEGIC [Concomitant]
  25. LANSOPRAZOLE [Concomitant]
  26. LANSOPRAZOLE [Concomitant]
  27. MIDAZOLAM HCL [Concomitant]
  28. MIDAZOLAM HCL [Concomitant]
  29. MORPHINE HCL ELIXIR [Concomitant]
  30. MORPHINE HCL ELIXIR [Concomitant]
  31. NIMBEX [Concomitant]
  32. NIMBEX [Concomitant]
  33. ACETAMINOPHEN [Concomitant]
  34. ACETAMINOPHEN [Concomitant]
  35. UMULINE [Concomitant]
  36. UMULINE [Concomitant]
  37. ROCEPHIN [Concomitant]
  38. ROCEPHIN [Concomitant]
  39. METRONIDAZOLE HCL [Concomitant]
  40. TAZOCILLINE [Concomitant]
  41. CLAVENTIN [Concomitant]

REACTIONS (10)
  - CARDIO-RESPIRATORY ARREST [None]
  - DIALYSIS [None]
  - DRUG INTERACTION [None]
  - HYPOCALCAEMIA [None]
  - HYPOKALAEMIA [None]
  - PNEUMONIA [None]
  - RENAL FAILURE ACUTE [None]
  - RHABDOMYOLYSIS [None]
  - SEPTIC SHOCK [None]
  - VENTRICULAR FIBRILLATION [None]
